FAERS Safety Report 10144080 (Version 1)
Quarter: 2014Q2

REPORT INFORMATION
  Report Type: Spontaneous
  Country: FR (occurrence: FR)
  Receive Date: 20140430
  Receipt Date: 20140430
  Transmission Date: 20141212
  Serious: Yes (Hospitalization)
  Sender: FDA-Public Use
  Company Number: FR-PFIZER INC-2014114577

PATIENT
  Age: 81 Year
  Sex: Female

DRUGS (13)
  1. TRIFLUCAN [Suspect]
     Dosage: 50 MG, 3X/DAY
     Route: 048
     Dates: start: 20140117
  2. VELCADE [Suspect]
     Indication: PLASMA CELL MYELOMA
     Dosage: UNK
     Route: 042
     Dates: start: 201312, end: 20140114
  3. ENDOXAN [Suspect]
     Indication: PLASMA CELL MYELOMA
     Dosage: UNK
     Route: 042
     Dates: start: 201312, end: 20140114
  4. DEXAMETHASONE [Suspect]
     Indication: PLASMA CELL MYELOMA
     Dosage: UNK
     Route: 042
     Dates: start: 201312, end: 20140114
  5. CALCIPARIN [Suspect]
     Dosage: 1 DF, 2X/DAY
     Route: 058
  6. LASILIX [Suspect]
     Dosage: 750 MG, DAILY
     Route: 048
     Dates: start: 20140117
  7. UN-ALFA [Concomitant]
     Dosage: 0.5 UG, 1X/DAY
     Route: 048
  8. ZELITREX [Concomitant]
     Dosage: 250 MG, DAILY
     Route: 048
  9. ARANESP [Concomitant]
     Dosage: 80 UG, WEEKLY (IN SATURDAY)
     Route: 058
  10. BACTRIM FORTE [Concomitant]
     Dosage: 0.5 DF, 3X/WEEK
     Route: 048
  11. DIFFU-K [Concomitant]
     Dosage: 2 DF, 3X/DAY
     Route: 048
  12. PARACETAMOL [Concomitant]
     Dosage: 1 G, 4X/DAY
     Route: 048
  13. VITAMINE B6 [Concomitant]
     Dosage: 250 MG, 2X/DAY
     Dates: start: 20140117

REACTIONS (1)
  - Febrile bone marrow aplasia [Recovered/Resolved]
